FAERS Safety Report 9231284 (Version 2)
Quarter: 2013Q3

REPORT INFORMATION
  Report Type: Spontaneous
  Country: DE (occurrence: DE)
  Receive Date: 20130415
  Receipt Date: 20130801
  Transmission Date: 20140515
  Serious: Yes (Death, Other)
  Sender: FDA-Public Use
  Company Number: DE-ROCHE-1213948

PATIENT
  Age: 46 Year
  Sex: Female
  Weight: 71 kg

DRUGS (3)
  1. XELODA [Suspect]
     Indication: BREAST CANCER
     Dosage: DAY 1-14/21
     Route: 048
     Dates: start: 20130128, end: 20130310
  2. AVASTIN [Concomitant]
     Indication: BREAST CANCER
     Route: 042
     Dates: start: 20130306, end: 20130306
  3. TAMOXIFEN [Concomitant]
     Route: 065
     Dates: start: 2013

REACTIONS (4)
  - Pericardial effusion [Fatal]
  - Cardiac failure [Fatal]
  - Pleural effusion [Fatal]
  - Myocardial infarction [Unknown]
